FAERS Safety Report 10503096 (Version 2)
Quarter: 2014Q4

REPORT INFORMATION
  Report Type: Report from Study
  Country: US (occurrence: US)
  Receive Date: 20141007
  Receipt Date: 20141010
  Transmission Date: 20150528
  Serious: Yes (Hospitalization, Other)
  Sender: FDA-Public Use
  Company Number: US-ABBVIE-14P-163-1292761-00

PATIENT
  Age: 81 Year
  Sex: Male
  Weight: 73.59 kg

DRUGS (2)
  1. LUPRON DEPOT [Suspect]
     Active Substance: LEUPROLIDE ACETATE
     Indication: PROSTATE CANCER
     Route: 030
     Dates: start: 20140708
  2. TAK-700 [Concomitant]
     Indication: PROSTATE CANCER
     Route: 048
     Dates: start: 20140708

REACTIONS (2)
  - Pneumonitis [Recovering/Resolving]
  - Hypoxia [Recovering/Resolving]

NARRATIVE: CASE EVENT DATE: 20140910
